FAERS Safety Report 20841635 (Version 1)
Quarter: 2022Q2

REPORT INFORMATION
  Report Type: Spontaneous
  Country: US (occurrence: US)
  Receive Date: 20220518
  Receipt Date: 20220518
  Transmission Date: 20220721
  Serious: Yes (Hospitalization)
  Sender: FDA-Public Use
  Company Number: US-BoehringerIngelheim-2022-BI-171211

PATIENT
  Age: 84 Year
  Sex: Female

DRUGS (1)
  1. OFEV [Suspect]
     Active Substance: NINTEDANIB
     Indication: Idiopathic pulmonary fibrosis
     Route: 048
     Dates: start: 20220503

REACTIONS (10)
  - Rhinorrhoea [Recovered/Resolved]
  - Asthenia [Recovering/Resolving]
  - Confusional state [Recovered/Resolved]
  - Dehydration [Recovering/Resolving]
  - Hypoxia [Recovering/Resolving]
  - Hypertension [Recovering/Resolving]
  - Urinary tract infection [Recovering/Resolving]
  - Lethargy [Recovering/Resolving]
  - White blood cell count increased [Recovering/Resolving]
  - Troponin increased [Recovering/Resolving]

NARRATIVE: CASE EVENT DATE: 20220510
